FAERS Safety Report 9530402 (Version 5)
Quarter: 2013Q4

REPORT INFORMATION
  Report Type: Report from Study
  Country: FR (occurrence: FR)
  Receive Date: 20130918
  Receipt Date: 20131120
  Transmission Date: 20140711
  Serious: Yes (Other)
  Sender: FDA-Public Use
  Company Number: FR-ROCHE-1276389

PATIENT
  Age: 44 Year
  Sex: Female
  Weight: 70 kg

DRUGS (13)
  1. RITUXIMAB [Suspect]
     Indication: B-CELL LYMPHOMA
     Route: 042
     Dates: start: 20130513
  2. RHUPH20/RITUXIMAB [Suspect]
     Indication: B-CELL LYMPHOMA
     Dosage: DATE OF THE MOST RECENT DOSE : 05/JUL/2013
     Route: 058
     Dates: start: 20130313, end: 20130924
  3. RHUPH20/RITUXIMAB [Suspect]
     Indication: B-CELL LYMPHOMA
  4. PAROXETINE [Suspect]
     Indication: DEPRESSION
     Route: 065
     Dates: start: 2005
  5. COVERAM [Suspect]
     Indication: HYPERTENSION
     Route: 065
     Dates: start: 200912
  6. COVERAM [Suspect]
     Route: 065
     Dates: start: 201209
  7. SODIUM VALPROATE [Suspect]
     Indication: PRODUCT USED FOR UNKNOWN INDICATION
     Route: 065
     Dates: start: 2007
  8. BENDAMUSTINE [Suspect]
     Indication: B-CELL LYMPHOMA
     Dosage: DATE OF THE MOST RECENT DOSE PRIOR TO SAE :07/AUG/2013
     Route: 042
     Dates: start: 20130514, end: 20130924
  9. ACIDE VALPROIQUE [Concomitant]
     Indication: EPILEPSY
     Route: 065
     Dates: start: 2007
  10. CO-TRIMOXAZOLE [Concomitant]
     Indication: PROPHYLAXIS
     Route: 065
     Dates: start: 20130513
  11. ACIDE FOLINIQUE [Concomitant]
     Indication: PROPHYLAXIS
     Route: 065
     Dates: start: 20130513
  12. VALACICLOVIR [Concomitant]
     Indication: PROPHYLAXIS
     Route: 065
     Dates: start: 20130513
  13. ALPRAZOLAM [Concomitant]
     Indication: ANXIETY
     Route: 065
     Dates: start: 2005

REACTIONS (1)
  - Alanine aminotransferase increased [Not Recovered/Not Resolved]
